FAERS Safety Report 7375907-6 (Version None)
Quarter: 2011Q1

REPORT INFORMATION
  Report Type: 
  Country: None (occurrence: None)
  Receive Date: 20110325
  Receipt Date: 20110318
  Transmission Date: 20110831
  Serious: Yes (Hospitalization)
  Sender: FDA-Public Use
  Company Number: B0706862A

PATIENT
  Age: 27 Year
  Sex: Female

DRUGS (4)
  1. DAFALGAN [Suspect]
     Indication: TONSILLITIS
     Dosage: 2TAB SINGLE DOSE
     Route: 048
     Dates: start: 20100920, end: 20100920
  2. DERINOX [Suspect]
     Indication: TONSILLITIS
     Route: 045
     Dates: start: 20100920, end: 20100920
  3. DOMPERIDONE [Suspect]
     Dosage: 1TAB SINGLE DOSE
     Route: 048
     Dates: start: 20100920, end: 20100920
  4. AUGMENTIN [Suspect]
     Indication: TONSILLITIS
     Dosage: 1G SINGLE DOSE
     Route: 048
     Dates: start: 20100920, end: 20100920

REACTIONS (7)
  - DYSPNOEA [None]
  - DYSPHONIA [None]
  - FACE OEDEMA [None]
  - DYSPHAGIA [None]
  - HYPERSENSITIVITY [None]
  - ANGIOEDEMA [None]
  - LIP OEDEMA [None]
